FAERS Safety Report 4775442-5 (Version None)
Quarter: 2005Q3

REPORT INFORMATION
  Report Type: 
  Country: None (occurrence: None)
  Receive Date: 20050921
  Receipt Date: 20050921
  Transmission Date: 20060218
  Serious: Yes (Hospitalization)
  Sender: FDA-Public Use
  Company Number: None

PATIENT
  Sex: Male

DRUGS (11)
  1. NAPROXEN [Suspect]
     Indication: OSTEOARTHRITIS
     Dosage: 500 MG BID PO
     Route: 048
  2. ASPIRIN [Suspect]
     Indication: PROPHYLAXIS
     Dosage: 325 MG DAILY PO
     Route: 048
  3. ALLOPURINOL [Concomitant]
  4. ATENOLOL [Concomitant]
  5. LISINOPRIL [Concomitant]
  6. MULTI-VITAMIN [Concomitant]
  7. ADAP [Concomitant]
  8. FUROSEMIDE [Concomitant]
  9. FORMOTEROL [Concomitant]
  10. FLUNISOLIDE [Concomitant]
  11. .. [Concomitant]

REACTIONS (1)
  - HAEMATOCHEZIA [None]
